FAERS Safety Report 5528933-3 (Version None)
Quarter: 2007Q4

REPORT INFORMATION
  Report Type: 
  Country: None (occurrence: None)
  Receive Date: 20071129
  Receipt Date: 20071116
  Transmission Date: 20080405
  Serious: Yes (Other)
  Sender: FDA-Public Use
  Company Number: FR-AMGEN-UK247593

PATIENT
  Sex: Female

DRUGS (5)
  1. PANITUMUMAB [Suspect]
     Indication: COLORECTAL CANCER
     Route: 041
     Dates: start: 20070820
  2. PANITUMUMAB - OBSERVATION/NO DRUG [Suspect]
     Indication: COLORECTAL CANCER
  3. LEUCOVORIN CALCIUM [Concomitant]
  4. IRINOTECAN HCL [Concomitant]
  5. FLUOROURACIL [Concomitant]

REACTIONS (4)
  - ASTHENIA [None]
  - DRUG DISPENSING ERROR [None]
  - OVERDOSE [None]
  - RASH [None]
